FAERS Safety Report 16738159 (Version 2)
Quarter: 2019Q4

REPORT INFORMATION
  Report Type: Spontaneous
  Country: US (occurrence: US)
  Receive Date: 20190824
  Receipt Date: 20191126
  Transmission Date: 20200122
  Serious: Yes (Other)
  Sender: FDA-Public Use
  Company Number: US-009507513-1908USA007802

PATIENT
  Age: 27 Year
  Sex: Female

DRUGS (4)
  1. CASPOFUNGIN ACETATE. [Concomitant]
     Active Substance: CASPOFUNGIN ACETATE
     Indication: ASPERGILLUS INFECTION
     Dosage: 50 MILLIGRAM, QD
     Route: 042
  2. NOXAFIL [Suspect]
     Active Substance: POSACONAZOLE
     Indication: ASPERGILLUS INFECTION
     Dosage: 300 MILLIGRAM, BID
     Route: 048
  3. NOXAFIL [Suspect]
     Active Substance: POSACONAZOLE
     Dosage: 400 MILLIGRAM, QD
     Route: 048
  4. AMPHOTERICIN B. [Concomitant]
     Active Substance: AMPHOTERICIN B
     Indication: ASPERGILLUS INFECTION
     Dosage: 25 MILLIGRAM, BID
     Route: 055

REACTIONS (1)
  - Drug ineffective [Unknown]
